FAERS Safety Report 8596900-1 (Version None)
Quarter: 2012Q3

REPORT INFORMATION
  Report Type: 
  Country: None (occurrence: None)
  Receive Date: 20120815
  Receipt Date: 20120809
  Transmission Date: 20120928
  Serious: Yes (Hospitalization, Other)
  Sender: FDA-Public Use
  Company Number: BR-BAYER-2012-080517

PATIENT
  Age: 29 Year
  Sex: Female
  Weight: 69.841 kg

DRUGS (4)
  1. SYNTHROID [Concomitant]
     Indication: THYROIDECTOMY
     Dosage: 225 ?G, QD
     Route: 048
     Dates: start: 20090101
  2. MIRENA [Suspect]
     Dosage: 20 MCG/24HR, CONT
     Route: 015
     Dates: start: 20090101, end: 20090101
  3. MIRENA [Suspect]
     Indication: ENDOMETRIOSIS
     Dosage: 20 ?G/D, CONT
     Route: 015
     Dates: start: 20070101, end: 20080101
  4. MIRENA [Suspect]
     Dosage: 20 MCG/24HR, CONT
     Route: 015
     Dates: start: 20080101, end: 20090101

REACTIONS (6)
  - DEVICE EXPULSION [None]
  - ABDOMINAL DISTENSION [None]
  - URINARY INCONTINENCE [None]
  - DEVICE DISLOCATION [None]
  - URINARY TRACT INFECTION [None]
  - PROCEDURAL PAIN [None]
